FAERS Safety Report 4606618-5 (Version None)
Quarter: 2005Q2

REPORT INFORMATION
  Report Type: 
  Country: None (occurrence: None)
  Receive Date: 20050223
  Receipt Date: 20040422
  Transmission Date: 20051028
  Serious: Yes (Hospitalization)
  Sender: FDA-Public Use
  Company Number: WAES 0404USA02011

PATIENT
  Age: 35 Year
  Sex: Female

DRUGS (3)
  1. ZOCOR [Suspect]
     Indication: HYPERCHOLESTEROLAEMIA
     Dosage: PO
     Route: 048
     Dates: start: 20020925, end: 20030127
  2. CELEXA [Concomitant]
  3. ORTHO CYCLEN-28 [Concomitant]

REACTIONS (1)
  - RHABDOMYOLYSIS [None]
